FAERS Safety Report 6492940-7 (Version None)
Quarter: 2009Q4

REPORT INFORMATION
  Report Type: 
  Country: None (occurrence: None)
  Receive Date: 20091214
  Receipt Date: 20091204
  Transmission Date: 20100525
  Serious: Yes (Other)
  Sender: FDA-Public Use
  Company Number: PHHY2009US54171

PATIENT
  Sex: Female

DRUGS (1)
  1. RECLAST [Suspect]
     Dosage: UNK
     Dates: start: 20091023

REACTIONS (6)
  - AGGRESSION [None]
  - DIZZINESS [None]
  - HALLUCINATION [None]
  - MOOD SWINGS [None]
  - PAIN [None]
  - PYREXIA [None]
